FAERS Safety Report 4364070-1 (Version None)
Quarter: 2004Q2

REPORT INFORMATION
  Report Type: 
  Country: None (occurrence: None)
  Receive Date: 20040520
  Receipt Date: 20040520
  Transmission Date: 20050107
  Serious: Yes (Hospitalization)
  Sender: FDA-Public Use
  Company Number: None

PATIENT
  Age: 67 Year
  Sex: Female
  Weight: 81.6475 kg

DRUGS (12)
  1. ZOCOR [Suspect]
     Indication: HYPERLIPIDAEMIA
     Dosage: ONE TABLET DAILY ORAL
     Route: 048
     Dates: start: 20040116, end: 20040225
  2. GEMFIBROZIL [Suspect]
     Indication: HYPERTRIGLYCERIDAEMIA
     Dosage: ONE TABLET TWICE DAIL ORAL
     Route: 048
     Dates: start: 20040116, end: 20040225
  3. AMIODARONE HCL [Concomitant]
  4. FUROSEMIDE [Concomitant]
  5. PREMARIN [Concomitant]
  6. CLOPIDOGREL BISULFATE [Concomitant]
  7. HUMULIN 70/30 [Concomitant]
  8. ASPIRIN [Concomitant]
  9. NIFEDIPINE [Concomitant]
  10. LISINOPRIL [Concomitant]
  11. ATENOLOL [Concomitant]
  12. METRONIDAZOLE [Concomitant]

REACTIONS (5)
  - ATRIAL FIBRILLATION [None]
  - DEHYDRATION [None]
  - RENAL FAILURE [None]
  - RHABDOMYOLYSIS [None]
  - VENTRICULAR DYSFUNCTION [None]
